FAERS Safety Report 13462997 (Version 1)
Quarter: 2017Q2

REPORT INFORMATION
  Report Type: Report from Study
  Country: US (occurrence: US)
  Receive Date: 20170420
  Receipt Date: 20170420
  Transmission Date: 20170830
  Serious: Yes (Hospitalization)
  Sender: FDA-Public Use
  Company Number: US-BAYER-2017-072237

PATIENT
  Age: 36 Year
  Sex: Male

DRUGS (1)
  1. NEXAVAR [Suspect]
     Active Substance: SORAFENIB
     Indication: ACUTE MYELOID LEUKAEMIA
     Dosage: DAILY DOSE 400 MG
     Route: 048
     Dates: start: 20160205

REACTIONS (2)
  - Off label use [None]
  - Hospitalisation [None]

NARRATIVE: CASE EVENT DATE: 20170301
